FAERS Safety Report 20542549 (Version 4)
Quarter: 2022Q2

REPORT INFORMATION
  Report Type: Spontaneous
  Country: CA (occurrence: CA)
  Receive Date: 20220302
  Receipt Date: 20220304
  Transmission Date: 20220720
  Serious: Yes (Hospitalization, Other)
  Sender: FDA-Public Use
  Company Number: CA-CIPHER-2022-CA-000080

PATIENT
  Age: 54 Year
  Sex: Female

DRUGS (25)
  1. TRAMADOL HYDROCHLORIDE [Suspect]
     Active Substance: TRAMADOL HYDROCHLORIDE
     Indication: Product used for unknown indication
     Dosage: DOSE UNKNOWN
     Route: 065
  2. ERGOCALCIFEROL [Suspect]
     Active Substance: ERGOCALCIFEROL
  3. ESOMEPRAZOLE [Suspect]
     Active Substance: ESOMEPRAZOLE
  4. FORMOTEROL FUMARATE [Suspect]
     Active Substance: FORMOTEROL FUMARATE
  5. LEVOTHYROXINE SODIUM [Suspect]
     Active Substance: LEVOTHYROXINE SODIUM
  6. METOPROLOL [Suspect]
     Active Substance: METOPROLOL
  7. MOMETASONE [Suspect]
     Active Substance: MOMETASONE
  8. MONTELUKAST SODIUM [Suspect]
     Active Substance: MONTELUKAST SODIUM
  9. NASONEX [Suspect]
     Active Substance: MOMETASONE FUROATE
  10. PERINDOPRIL [Suspect]
     Active Substance: PERINDOPRIL
  11. TRAMADOL [Suspect]
     Active Substance: TRAMADOL
  12. PREDNISONE [Suspect]
     Active Substance: PREDNISONE
  13. ALBUTEROL [Suspect]
     Active Substance: ALBUTEROL
     Dates: start: 20000101
  14. ALBUTEROL [Concomitant]
     Active Substance: ALBUTEROL
  15. SPIRONOLACTONE [Suspect]
     Active Substance: SPIRONOLACTONE
  16. TRAZODONE [Suspect]
     Active Substance: TRAZODONE HYDROCHLORIDE
  17. VITAMIN C [Suspect]
     Active Substance: ASCORBIC ACID
  18. LIOTHYRONINE SODIUM [Suspect]
     Active Substance: LIOTHYRONINE SODIUM
  19. ACYCLOVIR [Suspect]
     Active Substance: ACYCLOVIR
  20. APIXABAN [Suspect]
     Active Substance: APIXABAN
  21. TRAMADOL [Suspect]
     Active Substance: TRAMADOL
  22. BUDESONIDE\FORMOTEROL FUMARATE DIHYDRATE [Suspect]
     Active Substance: BUDESONIDE\FORMOTEROL FUMARATE DIHYDRATE
  23. BUPROPION [Suspect]
     Active Substance: BUPROPION
  24. CLONAZEPAM [Suspect]
     Active Substance: CLONAZEPAM
  25. CYANOCOBALAMIN [Suspect]
     Active Substance: CYANOCOBALAMIN

REACTIONS (22)
  - Gastrooesophageal reflux disease [Recovered/Resolved]
  - Headache [Recovered/Resolved]
  - Hypertension [Recovered/Resolved]
  - Hypothyroidism [Recovered/Resolved]
  - Loss of personal independence in daily activities [Recovered/Resolved]
  - Polycystic ovaries [Recovered/Resolved]
  - Renal disorder [Recovered/Resolved]
  - Rhinitis allergic [Recovered/Resolved]
  - Sensitisation [Recovered/Resolved]
  - Sleep apnoea syndrome [Recovered/Resolved]
  - Asthma [Recovered/Resolved]
  - Sleep disorder due to a general medical condition [Recovered/Resolved]
  - Therapeutic product effect incomplete [Recovered/Resolved]
  - Wheezing [Recovered/Resolved]
  - Blood test abnormal [Recovered/Resolved]
  - Burning sensation [Recovered/Resolved]
  - Cardiac disorder [Recovered/Resolved]
  - Carpal tunnel syndrome [Recovered/Resolved]
  - Dyspnoea [Recovered/Resolved]
  - Ejection fraction abnormal [Recovered/Resolved]
  - Fibromyalgia [Recovered/Resolved]
  - Full blood count abnormal [Recovered/Resolved]
